FAERS Safety Report 12641068 (Version 1)
Quarter: 2016Q3

REPORT INFORMATION
  Report Type: Spontaneous
  Country: US (occurrence: US)
  Receive Date: 20160810
  Receipt Date: 20160810
  Transmission Date: 20161109
  Serious: No
  Sender: FDA-Public Use
  Company Number: US-ENDO PHARMACEUTICALS INC.-2016-003142

PATIENT
  Sex: Male
  Weight: 81.72 kg

DRUGS (2)
  1. XIAFLEX [Suspect]
     Active Substance: COLLAGENASE CLOSTRIDIUM HISTOLYTICUM
     Indication: PEYRONIE^S DISEASE
     Dosage: CYCLE 2: INJECT 0.58MG INTO PENILE PLAQUE UP TO 2 TIMES AT APPROXIMATELY 6 INTERVALS
     Route: 026
  2. XIAFLEX [Suspect]
     Active Substance: COLLAGENASE CLOSTRIDIUM HISTOLYTICUM
     Dosage: CYCLE 1: INJECT 0.58MG INTO PENILE PLAQUE UP TO 2 TIMES AT APPROXIMATELY 6 INTERVALS
     Route: 026
     Dates: start: 2015

REACTIONS (2)
  - Inappropriate schedule of drug administration [Recovered/Resolved]
  - Drug ineffective [Unknown]
